FAERS Safety Report 19103303 (Version 12)
Quarter: 2022Q4

REPORT INFORMATION
  Report Type: Spontaneous
  Country: IN (occurrence: IN)
  Receive Date: 20210407
  Receipt Date: 20221214
  Transmission Date: 20230112
  Serious: Yes (Death, Hospitalization, Other)
  Sender: FDA-Public Use
  Company Number: IN-PFIZER INC-2021218798

PATIENT
  Age: 30 Year
  Sex: Male

DRUGS (8)
  1. LORLATINIB [Suspect]
     Active Substance: LORLATINIB
     Indication: Lung cancer metastatic
     Dosage: 50 MG (2 TABLETS OF 25 MG), 1X/DAY
     Route: 048
     Dates: start: 20210223, end: 20210312
  2. LORLATINIB [Suspect]
     Active Substance: LORLATINIB
     Dosage: 25 MG, 1X/DAY
     Route: 048
     Dates: start: 20210312
  3. LORLATINIB [Suspect]
     Active Substance: LORLATINIB
     Dosage: 25 MG, 1X/DAY
     Route: 048
     Dates: start: 20210406
  4. LORLATINIB [Suspect]
     Active Substance: LORLATINIB
     Dosage: 100 UNK
  5. FERROUS ASCORBATE\FOLIC ACID [Concomitant]
     Active Substance: FERROUS ASCORBATE\FOLIC ACID
     Dosage: 1 DF, DAILY
  6. SEVELAMER [Concomitant]
     Active Substance: SEVELAMER
     Dosage: 800MG 1-1-1
  7. CALCIUM [Concomitant]
     Active Substance: CALCIUM
     Dosage: 1-0-1
  8. CHOLECALCIFEROL [Concomitant]
     Active Substance: CHOLECALCIFEROL
     Dosage: UNK
     Route: 030

REACTIONS (5)
  - Death [Fatal]
  - Dialysis [Not Recovered/Not Resolved]
  - Chronic kidney disease [Unknown]
  - Anaemia [Unknown]
  - Off label use [Unknown]

NARRATIVE: CASE EVENT DATE: 20210406
